FAERS Safety Report 23404456 (Version 1)
Quarter: 2024Q1

REPORT INFORMATION
  Report Type: Spontaneous
  Country: CN (occurrence: CN)
  Receive Date: 20240116
  Receipt Date: 20240116
  Transmission Date: 20240410
  Serious: Yes (Hospitalization)
  Sender: FDA-Public Use
  Company Number: CN-ABBVIE-5584412

PATIENT
  Age: 49 Year
  Sex: Female
  Weight: 60 kg

DRUGS (4)
  1. VENETOCLAX [Suspect]
     Active Substance: VENETOCLAX
     Indication: Chemotherapy
     Dosage: DAY 1
     Route: 048
     Dates: start: 20231220, end: 20231220
  2. VENETOCLAX [Suspect]
     Active Substance: VENETOCLAX
     Indication: Chemotherapy
     Dosage: DAY 2 TO DAY 14
     Route: 048
     Dates: start: 20231221, end: 20240102
  3. AZACITIDINE [Suspect]
     Active Substance: AZACITIDINE
     Indication: Chemotherapy
     Dosage: DAY 1
     Route: 065
     Dates: start: 20231220, end: 20231220
  4. AZACITIDINE [Suspect]
     Active Substance: AZACITIDINE
     Indication: Chemotherapy
     Dosage: DAY 2 TO DAY 6
     Route: 065
     Dates: start: 20231221, end: 20231225

REACTIONS (4)
  - Neutrophil count decreased [Not Recovered/Not Resolved]
  - Myelosuppression [Not Recovered/Not Resolved]
  - Pallor [Not Recovered/Not Resolved]
  - Abdominal pain [Not Recovered/Not Resolved]

NARRATIVE: CASE EVENT DATE: 20231228
